FAERS Safety Report 6484109-7 (Version None)
Quarter: 2009Q4

REPORT INFORMATION
  Report Type: 
  Country: None (occurrence: None)
  Receive Date: 20091209
  Receipt Date: 20091209
  Transmission Date: 20100525
  Serious: Yes (Other)
  Sender: FDA-Public Use
  Company Number: IT-WYE-G05100609

PATIENT
  Sex: Male

DRUGS (7)
  1. TAZOCIN [Suspect]
     Indication: URINARY TRACT INFECTION
     Route: 042
     Dates: start: 20090929, end: 20091025
  2. LOSARTAN [Concomitant]
     Indication: ESSENTIAL HYPERTENSION
     Dosage: 50MG
     Route: 048
     Dates: start: 20090929, end: 20091102
  3. STILNOX [Concomitant]
     Indication: INSOMNIA
     Dosage: 10MG
     Route: 048
     Dates: start: 20090929, end: 20091102
  4. CARDIRENE [Concomitant]
     Dosage: 300MG
     Route: 048
     Dates: start: 20091029, end: 20091102
  5. RISPERIDONE [Concomitant]
     Indication: RESTLESSNESS
     Dosage: 1.5MG
     Route: 048
     Dates: start: 20090929, end: 20091102
  6. DALACIN C PHOSPHATE [Suspect]
     Indication: URINARY TRACT INFECTION
     Route: 042
     Dates: start: 20090929, end: 20091025
  7. PRAZENE [Concomitant]
     Indication: ANXIETY
     Dosage: 10MG
     Route: 048
     Dates: start: 20090929, end: 20091102

REACTIONS (2)
  - ERYTHEMA [None]
  - TOXIC SKIN ERUPTION [None]
